FAERS Safety Report 5041904-9 (Version None)
Quarter: 2006Q2

REPORT INFORMATION
  Report Type: 
  Country: None (occurrence: None)
  Receive Date: 20060627
  Receipt Date: 20060609
  Transmission Date: 20061013
  Serious: Yes (Death, Hospitalization, Other)
  Sender: FDA-Public Use
  Company Number: US_0508120452

PATIENT
  Age: 47 Year
  Sex: Female
  Weight: 60.5 kg

DRUGS (4)
  1. ALIMTA [Suspect]
     Indication: NON-SMALL CELL LUNG CANCER
     Dosage: 800 MG
     Dates: start: 20050413, end: 20050602
  2. THALIDOMIDE (THALIDOMIDE) [Concomitant]
  3. VITAMIN B12 [Concomitant]
  4. FOLIC ACID [Concomitant]

REACTIONS (6)
  - GASTROINTESTINAL TOXICITY [None]
  - GENERAL PHYSICAL HEALTH DETERIORATION [None]
  - HYPERKALAEMIA [None]
  - INFECTION [None]
  - PANCYTOPENIA [None]
  - RENAL FAILURE [None]
